FAERS Safety Report 20194772 (Version 1)
Quarter: 2021Q4

REPORT INFORMATION
  Report Type: Report from Study
  Country: GB (occurrence: GB)
  Receive Date: 20211216
  Receipt Date: 20211216
  Transmission Date: 20220304
  Serious: Yes (Hospitalization)
  Sender: FDA-Public Use
  Company Number: GB-JNJFOC-20211113057

PATIENT
  Age: 76 Year
  Sex: Female
  Weight: 85.9 kg

DRUGS (2)
  1. AMIVANTAMAB [Suspect]
     Active Substance: AMIVANTAMAB
     Indication: Non-small cell lung cancer metastatic
     Route: 042
     Dates: start: 20200921, end: 20210505
  2. AMIVANTAMAB [Suspect]
     Active Substance: AMIVANTAMAB
     Route: 042
     Dates: start: 20210505, end: 20211101

REACTIONS (1)
  - Dermatosis [Recovering/Resolving]

NARRATIVE: CASE EVENT DATE: 20211101
